FAERS Safety Report 6310588-1 (Version None)
Quarter: 2009Q3

REPORT INFORMATION
  Report Type: 
  Country: None (occurrence: None)
  Receive Date: 20090814
  Receipt Date: 20090608
  Transmission Date: 20100115
  Serious: Yes (Other)
  Sender: FDA-Public Use
  Company Number: US-BRISTOL-MYERS SQUIBB COMPANY-14644892

PATIENT
  Age: 51 Year
  Sex: Female

DRUGS (8)
  1. IXEMPRA KIT [Suspect]
     Indication: BREAST CANCER METASTATIC
     Dosage: 2ND CYCLE: 40MG TAKEN ON 01JUN2009,START DATE OF TREATMENT 20-APR-09,HAD RECEIVED FLAT DOSE OF 40 MG
     Route: 042
     Dates: start: 20090511, end: 20090511
  2. TYLENOL W/ CODEINE NO. 4 [Concomitant]
  3. VALIUM [Concomitant]
     Indication: ABDOMINAL PAIN UPPER
     Route: 048
  4. NEULASTA [Concomitant]
     Dosage: TAKEN AFTER EACH IXEMPRA DOSE
  5. ZOMETA [Concomitant]
  6. AVASTIN [Concomitant]
     Route: 042
  7. ALOXI [Concomitant]
     Indication: PREMEDICATION
  8. DECADRON [Concomitant]
     Indication: PREMEDICATION

REACTIONS (2)
  - DIARRHOEA [None]
  - PANCYTOPENIA [None]
